FAERS Safety Report 15327334 (Version 2)
Quarter: 2018Q3

REPORT INFORMATION
  Report Type: Spontaneous
  Country: US (occurrence: US)
  Receive Date: 20180828
  Receipt Date: 20180914
  Transmission Date: 20181010
  Serious: Yes (Hospitalization)
  Sender: FDA-Public Use
  Company Number: US-TEVA-2018-US-948454

PATIENT
  Age: 65 Year
  Sex: Female

DRUGS (1)
  1. METHOTREXATE. [Suspect]
     Active Substance: METHOTREXATE
     Indication: RHEUMATOID ARTHRITIS
     Dosage: SHE INADVERTENTLY RECEIVED METHOTREXATE DAILY RATHER THAN WEEKLY
     Route: 065

REACTIONS (5)
  - Epidermal necrosis [Unknown]
  - Febrile neutropenia [Unknown]
  - Pancytopenia [Recovered/Resolved]
  - Stomatitis [Unknown]
  - Inappropriate schedule of drug administration [Unknown]
